FAERS Safety Report 9347683 (Version 1)
Quarter: 2013Q2

REPORT INFORMATION
  Report Type: Spontaneous
  Country: GB (occurrence: GB)
  Receive Date: 20130614
  Receipt Date: 20130614
  Transmission Date: 20140414
  Serious: Yes (Other)
  Sender: FDA-Public Use
  Company Number: GB-ROCHE-1235102

PATIENT
  Age: 33 Year
  Sex: Female
  Weight: 45.81 kg

DRUGS (5)
  1. CLONAZEPAM [Suspect]
     Indication: TORTICOLLIS
     Route: 048
     Dates: start: 20120921
  2. CLONAZEPAM [Suspect]
     Route: 048
     Dates: start: 20130505, end: 20130523
  3. BIOTIN [Concomitant]
     Indication: TORTICOLLIS
     Route: 065
  4. DYSPORT [Concomitant]
     Indication: TORTICOLLIS
     Route: 065
  5. TRIHEXYPHENIDYL [Concomitant]
     Indication: TORTICOLLIS
     Route: 065

REACTIONS (9)
  - Anxiety [Recovering/Resolving]
  - Speech disorder [Recovering/Resolving]
  - Dizziness [Recovering/Resolving]
  - Drug prescribing error [Unknown]
  - Feeling of body temperature change [Recovering/Resolving]
  - Nausea [Recovering/Resolving]
  - Paranoia [Recovering/Resolving]
  - Disturbance in attention [Recovering/Resolving]
  - Tremor [Recovering/Resolving]
